FAERS Safety Report 5804216-9 (Version None)
Quarter: 2008Q3

REPORT INFORMATION
  Report Type: 
  Country: None (occurrence: None)
  Receive Date: 20080707
  Receipt Date: 20080627
  Transmission Date: 20090109
  Serious: Yes (Life-Threatening)
  Sender: FDA-Public Use
  Company Number: 2008JP002971

PATIENT
  Age: 79 Year
  Sex: Female

DRUGS (5)
  1. PROGRAF [Suspect]
     Indication: RHEUMATOID ARTHRITIS
     Dosage: 0.5 MG, UID/QD, ORAL; 1 MG, UID/QD, ORAL; 1.5 MG
     Route: 048
     Dates: start: 20080218, end: 20080302
  2. PROGRAF [Suspect]
     Indication: RHEUMATOID ARTHRITIS
     Dosage: 0.5 MG, UID/QD, ORAL; 1 MG, UID/QD, ORAL; 1.5 MG
     Route: 048
     Dates: start: 20080303, end: 20080316
  3. PROGRAF [Suspect]
     Indication: RHEUMATOID ARTHRITIS
     Dosage: 0.5 MG, UID/QD, ORAL; 1 MG, UID/QD, ORAL; 1.5 MG
     Route: 048
     Dates: start: 20080317, end: 20080601
  4. ENBREL [Suspect]
     Dosage: 50 MG, WEEKLY, SUBCUTANEOUS
     Route: 058
     Dates: start: 20070816, end: 20080601
  5. PREDONINE (PREDNISOLONE) [Concomitant]

REACTIONS (1)
  - INTERSTITIAL LUNG DISEASE [None]
